FAERS Safety Report 23350644 (Version 1)
Quarter: 2023Q4

REPORT INFORMATION
  Report Type: Spontaneous
  Country: DE (occurrence: DE)
  Receive Date: 20231229
  Receipt Date: 20231229
  Transmission Date: 20240109
  Serious: Yes (Other)
  Sender: FDA-Public Use
  Company Number: DE-TORRENT-00025979

PATIENT
  Age: 77 Year
  Sex: Female
  Weight: 80 kg

DRUGS (7)
  1. RISPERIDONE [Suspect]
     Active Substance: RISPERIDONE
     Indication: Delusional disorder, unspecified type
     Dosage: 1.5 MG/DAY
     Route: 065
  2. OLANZAPINE [Interacting]
     Active Substance: OLANZAPINE
     Indication: Product used for unknown indication
     Dosage: 0-0-0-1
     Route: 048
  3. NICOTINE [Interacting]
     Active Substance: NICOTINE
     Indication: Product used for unknown indication
     Dosage: UNKNOWN
     Route: 065
  4. AMISULPRIDE [Interacting]
     Active Substance: AMISULPRIDE
     Indication: Product used for unknown indication
     Dosage: 1-0-1-0
     Route: 048
  5. ATORVASTATIN [Concomitant]
     Active Substance: ATORVASTATIN
     Indication: Product used for unknown indication
     Dosage: 0-0-1-0
     Route: 048
  6. RIVASTIGMINE [Concomitant]
     Active Substance: RIVASTIGMINE
     Indication: Product used for unknown indication
     Dosage: 1-0-0-0
     Route: 062
  7. AMPICILLIN SODIUM\SULBACTAM SODIUM [Concomitant]
     Active Substance: AMPICILLIN SODIUM\SULBACTAM SODIUM
     Indication: Pneumonia
     Dosage: UNKNOWN
     Route: 065

REACTIONS (7)
  - Antipsychotic drug level increased [Unknown]
  - Transaminases increased [Unknown]
  - Drug interaction [Unknown]
  - Electrocardiogram QT prolonged [Unknown]
  - Therapy partial responder [Unknown]
  - Hypotonia [Unknown]
  - Somnolence [Unknown]
